FAERS Safety Report 5892574-9 (Version None)
Quarter: 2008Q3

REPORT INFORMATION
  Report Type: 
  Country: None (occurrence: None)
  Receive Date: 20080919
  Receipt Date: 20080905
  Transmission Date: 20090109
  Serious: Yes (Hospitalization, Other)
  Sender: FDA-Public Use
  Company Number: 2008S1016125

PATIENT
  Age: 31 Year
  Sex: Male

DRUGS (1)
  1. GLIPIZIDE [Suspect]
     Indication: TYPE 2 DIABETES MELLITUS
     Dosage: 5 MG; DAILY;, 10 MG; DAILY;

REACTIONS (2)
  - BLOOD GLUCOSE INCREASED [None]
  - STEVENS-JOHNSON SYNDROME [None]
